FAERS Safety Report 7046481-9 (Version None)
Quarter: 2010Q4

REPORT INFORMATION
  Report Type: 
  Country: None (occurrence: None)
  Receive Date: 20101014
  Receipt Date: 20101001
  Transmission Date: 20110411
  Serious: Yes (Disabling)
  Sender: FDA-Public Use
  Company Number: PHHY2010US62140

PATIENT
  Sex: Female

DRUGS (15)
  1. RECLAST [Suspect]
     Indication: OSTEOPOROSIS
     Dosage: 5 MG
     Route: 042
     Dates: start: 20100816, end: 20100816
  2. ANXIOLYTICS [Concomitant]
     Indication: ANXIETY
  3. ZOLPIDEM [Concomitant]
     Indication: INSOMNIA
     Dosage: 10 MG, QD
     Route: 048
  4. AMITRIPTYLINE [Concomitant]
     Indication: SLEEP DISORDER
     Dosage: 10 MG, QD
     Route: 048
  5. DENAVIR [Concomitant]
     Dosage: UNK
     Route: 061
  6. NIASPAN [Concomitant]
     Dosage: 500 MG, QD
     Route: 048
  7. ZETIA [Concomitant]
     Dosage: 10 MG, QD
     Route: 048
  8. SERTRALINE HYDROCHLORIDE [Concomitant]
     Indication: ANXIETY
     Dosage: 50 MG, QD
     Route: 048
  9. OMEPRAZOLE [Concomitant]
     Indication: DYSPEPSIA
     Dosage: 20 MG, QD
     Route: 048
  10. PROMETHAZINE [Concomitant]
     Indication: NAUSEA
     Dosage: 25 MG, PRN
     Route: 048
  11. GABAPENTIN [Concomitant]
     Dosage: 100 MG, TID
     Route: 048
  12. CALCIUM [Concomitant]
     Dosage: 500 MG, BID
     Route: 048
  13. VITAMIN D [Concomitant]
     Dosage: 125 UNITS
  14. FISH OIL [Concomitant]
     Dosage: 1000 MG, TID
  15. LORAZEPAM [Concomitant]
     Dosage: 0.5 MG, TID
     Route: 048

REACTIONS (6)
  - ALOPECIA [None]
  - BLOOD MAGNESIUM INCREASED [None]
  - BURNING SENSATION [None]
  - MUSCLE TWITCHING [None]
  - MYALGIA [None]
  - PARAESTHESIA [None]
